FAERS Safety Report 13700913 (Version 2)
Quarter: 2017Q3

REPORT INFORMATION
  Report Type: Spontaneous
  Country: US (occurrence: US)
  Receive Date: 20170629
  Receipt Date: 20170719
  Transmission Date: 20171127
  Serious: No
  Sender: FDA-Public Use
  Company Number: US-PFIZER INC-2017280231

PATIENT
  Age: 58 Year
  Sex: Female

DRUGS (1)
  1. IBRANCE [Suspect]
     Active Substance: PALBOCICLIB
     Dosage: 125 MG, CYCLIC (TAKE 1 CAPSULE ONCE A DAY FOR 21 DAYS, THEN OFF FOR 7 DAYS)
     Route: 048

REACTIONS (3)
  - Fatigue [Unknown]
  - Alopecia [Unknown]
  - Asthenia [Unknown]
